FAERS Safety Report 21906303 (Version 2)
Quarter: 2023Q2

REPORT INFORMATION
  Report Type: Spontaneous
  Country: US (occurrence: US)
  Receive Date: 20230125
  Receipt Date: 20230510
  Transmission Date: 20230722
  Serious: Yes (Other)
  Sender: FDA-Public Use
  Company Number: US-BRISTOL-MYERS SQUIBB COMPANY-2023-010068

PATIENT
  Age: 83 Year
  Sex: Female
  Weight: 61.69 kg

DRUGS (2)
  1. REVLIMID [Suspect]
     Active Substance: LENALIDOMIDE
     Indication: Non-Hodgkin^s lymphoma
     Dosage: DAILY FOR 14 DAYS
     Route: 048
  2. REVLIMID [Suspect]
     Active Substance: LENALIDOMIDE
     Dosage: 14D ON 7D OFF
     Route: 048

REACTIONS (8)
  - Fatigue [Unknown]
  - Cellulitis [Unknown]
  - Skin laceration [Unknown]
  - Off label use [Unknown]
  - Pelvic fracture [Unknown]
  - Malaise [Unknown]
  - Transient ischaemic attack [Unknown]
  - Fall [Unknown]

NARRATIVE: CASE EVENT DATE: 20230430
